FAERS Safety Report 6170126-3 (Version None)
Quarter: 2009Q2

REPORT INFORMATION
  Report Type: 
  Country: None (occurrence: None)
  Receive Date: 20090428
  Receipt Date: 20090421
  Transmission Date: 20091009
  Serious: Yes (Hospitalization)
  Sender: FDA-Public Use
  Company Number: B0571985A

PATIENT
  Sex: Female
  Weight: 70 kg

DRUGS (2)
  1. TYKERB [Suspect]
     Dosage: 1250MG PER DAY
     Dates: start: 20090129, end: 20090328
  2. XELODA [Concomitant]
     Dosage: 2000MGM2 PER DAY
     Route: 065
     Dates: start: 20090129, end: 20090328

REACTIONS (3)
  - ANOREXIA [None]
  - ASTHENIA [None]
  - DIARRHOEA [None]
